FAERS Safety Report 5194726-2 (Version None)
Quarter: 2006Q4

REPORT INFORMATION
  Report Type: 
  Country: None (occurrence: None)
  Receive Date: 20061229
  Receipt Date: 20061019
  Transmission Date: 20070319
  Serious: Yes (Hospitalization)
  Sender: FDA-Public Use
  Company Number: PHNU2006DE03507

PATIENT
  Age: 84 Year
  Sex: Female

DRUGS (4)
  1. MOXONIDINE [Concomitant]
  2. ISOPTIN [Concomitant]
  3. MARCUMAR [Concomitant]
  4. CO-DIOVAN [Suspect]
     Indication: HYPERTENSION
     Dosage: 1 DF, QD
     Route: 048
     Dates: start: 20060801, end: 20061030

REACTIONS (48)
  - ANTI-ERYTHROCYTE ANTIBODY [None]
  - ANTINUCLEAR ANTIBODY POSITIVE [None]
  - AORTIC ARTERIOSCLEROSIS [None]
  - ASPARTATE AMINOTRANSFERASE INCREASED [None]
  - BLOOD BILIRUBIN INCREASED [None]
  - BLOOD CHOLINESTERASE DECREASED [None]
  - BLOOD COUNT ABNORMAL [None]
  - BLOOD CREATININE INCREASED [None]
  - BLOOD IRON INCREASED [None]
  - BLOOD LACTATE DEHYDROGENASE INCREASED [None]
  - BLOOD SODIUM DECREASED [None]
  - BLOOD UREA INCREASED [None]
  - BLOOD URIC ACID INCREASED [None]
  - BONE MARROW MYELOGRAM ABNORMAL [None]
  - BONE MARROW PLASMACYTE COUNT INCREASED [None]
  - BONE MARROW TOXICITY [None]
  - CARDIAC VALVE DISEASE [None]
  - COLD AGGLUTININS POSITIVE [None]
  - COOMBS TEST POSITIVE [None]
  - DYSLIPIDAEMIA [None]
  - DYSPNOEA AT REST [None]
  - ELECTROPHORESIS ABNORMAL [None]
  - ERYTHROPOIESIS ABNORMAL [None]
  - GAMMA-GLUTAMYLTRANSFERASE INCREASED [None]
  - GENERAL PHYSICAL HEALTH DETERIORATION [None]
  - GENERAL SYMPTOM [None]
  - GLOMERULAR FILTRATION RATE DECREASED [None]
  - HAEMATOCRIT DECREASED [None]
  - HAEMOGLOBIN DECREASED [None]
  - INTERNATIONAL NORMALISED RATIO INCREASED [None]
  - LABORATORY TEST ABNORMAL [None]
  - LEUKOPENIA [None]
  - LYMPHOCYTE COUNT DECREASED [None]
  - NEUTROPENIA [None]
  - NORMOCHROMIC NORMOCYTIC ANAEMIA [None]
  - PACKED RED BLOOD CELL TRANSFUSION [None]
  - PLATELET COUNT INCREASED [None]
  - PLEURAL EFFUSION [None]
  - POLYP COLORECTAL [None]
  - PULMONARY CONGESTION [None]
  - RED BLOOD CELL ABNORMALITY [None]
  - RED BLOOD CELL COUNT DECREASED [None]
  - RED BLOOD CELL SEDIMENTATION RATE INCREASED [None]
  - RETICULOCYTE COUNT DECREASED [None]
  - SERUM FERRITIN INCREASED [None]
  - SYSTEMIC LUPUS ERYTHEMATOSUS [None]
  - SYSTEMIC LUPUS ERYTHEMATOSUS RASH [None]
  - TRI-IODOTHYRONINE FREE INCREASED [None]
